FAERS Safety Report 16349794 (Version 1)
Quarter: 2019Q2

REPORT INFORMATION
  Report Type: Spontaneous
  Country: DK (occurrence: DK)
  Receive Date: 20190523
  Receipt Date: 20190523
  Transmission Date: 20190711
  Serious: Yes (Hospitalization)
  Sender: FDA-Public Use
  Company Number: PHHY2019DK114285

PATIENT
  Age: 82 Year
  Sex: Female

DRUGS (7)
  1. TRAMADOL. [Concomitant]
     Active Substance: TRAMADOL
     Indication: PAIN
     Dosage: 50 MG, VED BEHOV
     Route: 048
     Dates: start: 20180215
  2. PARACETAMOL [Concomitant]
     Active Substance: ACETAMINOPHEN
     Indication: PAIN
     Dosage: 1 G, EFTER BEHOV
     Route: 048
     Dates: start: 20161004
  3. GENTAMICIN. [Suspect]
     Active Substance: GENTAMICIN
     Dosage: 224.85 MG, QD
     Route: 042
     Dates: start: 20190419
  4. AMPICILLIN [Concomitant]
     Active Substance: AMPICILLIN
     Indication: PRODUCT USED FOR UNKNOWN INDICATION
     Dosage: UNK
     Route: 065
  5. GENTAMICIN. [Suspect]
     Active Substance: GENTAMICIN
     Indication: URINARY TRACT INFECTION
     Dosage: 370 MG, QD
     Route: 042
     Dates: start: 20190417
  6. PANTOPRAZOLE [Concomitant]
     Active Substance: PANTOPRAZOLE
     Indication: GASTROOESOPHAGEAL REFLUX DISEASE
     Dosage: 20 MG, QD
     Route: 048
     Dates: start: 20171116
  7. RIVAROXABAN [Concomitant]
     Active Substance: RIVAROXABAN
     Indication: THROMBOSIS PROPHYLAXIS
     Dosage: 10 MG, QD
     Route: 048
     Dates: start: 20170802

REACTIONS (2)
  - Nephrotic syndrome [Unknown]
  - Oedema [Unknown]

NARRATIVE: CASE EVENT DATE: 201904
